FAERS Safety Report 12431540 (Version 1)
Quarter: 2016Q2

REPORT INFORMATION
  Report Type: Spontaneous
  Country: US (occurrence: None)
  Receive Date: 20160602
  Receipt Date: 20160602
  Transmission Date: 20160815
  Serious: Yes (Hospitalization)
  Sender: FDA-Public Use
  Company Number: None

PATIENT
  Age: 66 Year
  Sex: Female
  Weight: 54.9 kg

DRUGS (3)
  1. CHINESE HERBAL SUPPLEMENT [Concomitant]
  2. RITUXIMAB (MOAB C2B8 ANTI CD20, CHIMERIC) [Suspect]
     Active Substance: RITUXIMAB
     Dates: end: 20160318
  3. LENALIDOMIDE (CC-5013) [Suspect]
     Active Substance: LENALIDOMIDE
     Dates: end: 20160405

REACTIONS (7)
  - Human rhinovirus test positive [None]
  - Sputum purulent [None]
  - Dyspnoea exertional [None]
  - Enterovirus test positive [None]
  - Pneumonia aspiration [None]
  - Febrile neutropenia [None]
  - Chills [None]

NARRATIVE: CASE EVENT DATE: 20160515
